FAERS Safety Report 7315824-0 (Version None)
Quarter: 2011Q1

REPORT INFORMATION
  Report Type: 
  Country: None (occurrence: None)
  Receive Date: 20110225
  Receipt Date: 20110218
  Transmission Date: 20110831
  Serious: Yes (Other)
  Sender: FDA-Public Use
  Company Number: US-ABBOTT-11P-163-0706319-00

PATIENT
  Age: 23 Year

DRUGS (1)
  1. VALPROIC ACID [Suspect]
     Indication: RETINITIS PIGMENTOSA
     Dosage: 500 MG DAILY

REACTIONS (1)
  - BLINDNESS UNILATERAL [None]
